FAERS Safety Report 5044957-7 (Version None)
Quarter: 2006Q2

REPORT INFORMATION
  Report Type: 
  Country: None (occurrence: None)
  Receive Date: 20060601
  Receipt Date: 20060424
  Transmission Date: 20061013
  Serious: No
  Sender: FDA-Public Use
  Company Number: 2006-BP-04586BP(0)

PATIENT
  Sex: Female

DRUGS (2)
  1. SPIRIVA [Suspect]
     Indication: ASTHMA
     Dosage: 18 MCG (18 MCG, 1 IN 1 D), IH
     Route: 055
     Dates: start: 20060407
  2. SPIRIVA [Suspect]
     Indication: INCREASED UPPER AIRWAY SECRETION
     Dosage: 18 MCG (18 MCG, 1 IN 1 D), IH
     Route: 055
     Dates: start: 20060407

REACTIONS (4)
  - DIARRHOEA [None]
  - DRY MOUTH [None]
  - PALPITATIONS [None]
  - STOMACH DISCOMFORT [None]
